FAERS Safety Report 24214471 (Version 2)
Quarter: 2024Q3

REPORT INFORMATION
  Report Type: Spontaneous
  Country: JP (occurrence: JP)
  Receive Date: 20240815
  Receipt Date: 20240820
  Transmission Date: 20241017
  Serious: Yes (Life-Threatening, Other)
  Sender: PFIZER
  Company Number: JP-MLMSERVICE-20240808-PI153609-00270-1

PATIENT
  Age: 18 Year
  Sex: Female

DRUGS (41)
  1. METHYLPREDNISOLONE SODIUM SUCCINATE [Suspect]
     Active Substance: METHYLPREDNISOLONE SODIUM SUCCINATE
     Indication: Immune-mediated myocarditis
     Dosage: 1 G, 1X/DAY
     Route: 042
  2. METHYLPREDNISOLONE SODIUM SUCCINATE [Suspect]
     Active Substance: METHYLPREDNISOLONE SODIUM SUCCINATE
     Indication: Eosinophilic myocarditis
     Dosage: 1 G, 1X/DAY
     Route: 042
  3. METHYLPREDNISOLONE SODIUM SUCCINATE [Suspect]
     Active Substance: METHYLPREDNISOLONE SODIUM SUCCINATE
     Indication: Takayasu^s arteritis
  4. PREDNISOLONE [Suspect]
     Active Substance: PREDNISOLONE
     Indication: Takayasu^s arteritis
     Dosage: 50 MG
     Route: 048
  5. PREDNISOLONE [Suspect]
     Active Substance: PREDNISOLONE
     Indication: Renal artery stenosis
     Dosage: 1 MG/KG, 1X/DAY
     Route: 048
  6. PREDNISOLONE [Suspect]
     Active Substance: PREDNISOLONE
     Indication: Myocarditis
     Dosage: 30 MG
     Route: 048
  7. PREDNISOLONE [Suspect]
     Active Substance: PREDNISOLONE
     Dosage: 35 MG
     Route: 048
  8. PREDNISOLONE [Suspect]
     Active Substance: PREDNISOLONE
     Dosage: 40 MG
     Route: 048
  9. PREDNISOLONE [Suspect]
     Active Substance: PREDNISOLONE
     Dosage: 25 MG
     Route: 048
  10. CARPERITIDE [Concomitant]
     Active Substance: CARPERITIDE
     Indication: Blood pressure measurement
     Dosage: UNK
  11. FUROSEMIDE [Concomitant]
     Active Substance: FUROSEMIDE
     Indication: Myocarditis
     Dosage: 160 MG
     Route: 048
  12. FUROSEMIDE [Concomitant]
     Active Substance: FUROSEMIDE
     Indication: Takayasu^s arteritis
     Dosage: 320 MG
     Route: 048
  13. FUROSEMIDE [Concomitant]
     Active Substance: FUROSEMIDE
     Indication: Renal artery stenosis
     Dosage: 120 MG
     Route: 048
  14. FUROSEMIDE [Concomitant]
     Active Substance: FUROSEMIDE
     Dosage: 160 MG
     Route: 048
  15. FUROSEMIDE [Concomitant]
     Active Substance: FUROSEMIDE
     Dosage: UNK
     Route: 042
  16. FUROSEMIDE [Concomitant]
     Active Substance: FUROSEMIDE
     Dosage: 120 MG
     Route: 048
  17. AMLODIPINE [Concomitant]
     Active Substance: AMLODIPINE BESYLATE
     Indication: Myocarditis
     Dosage: 10 MG
  18. AMLODIPINE [Concomitant]
     Active Substance: AMLODIPINE BESYLATE
     Indication: Takayasu^s arteritis
  19. AMLODIPINE [Concomitant]
     Active Substance: AMLODIPINE BESYLATE
     Indication: Renal artery stenosis
  20. NIFEDIPINE [Concomitant]
     Active Substance: NIFEDIPINE
     Indication: Takayasu^s arteritis
     Dosage: 20 MG
  21. NIFEDIPINE [Concomitant]
     Active Substance: NIFEDIPINE
     Indication: Myocarditis
  22. NIFEDIPINE [Concomitant]
     Active Substance: NIFEDIPINE
     Indication: Renal artery stenosis
  23. BISOPROLOL [Concomitant]
     Active Substance: BISOPROLOL\BISOPROLOL FUMARATE
     Indication: Takayasu^s arteritis
     Dosage: 2.5 MG
  24. BISOPROLOL [Concomitant]
     Active Substance: BISOPROLOL\BISOPROLOL FUMARATE
     Indication: Myocarditis
  25. BISOPROLOL [Concomitant]
     Active Substance: BISOPROLOL\BISOPROLOL FUMARATE
     Indication: Renal artery stenosis
  26. NITROGLYCERIN [Concomitant]
     Active Substance: NITROGLYCERIN
     Indication: Blood pressure measurement
     Dosage: UNK
     Route: 042
  27. TOLVAPTAN [Concomitant]
     Active Substance: TOLVAPTAN
     Indication: Myocarditis
     Dosage: 15 MG
  28. TOLVAPTAN [Concomitant]
     Active Substance: TOLVAPTAN
     Indication: Takayasu^s arteritis
  29. TOLVAPTAN [Concomitant]
     Active Substance: TOLVAPTAN
     Indication: Renal artery stenosis
  30. ASPIRIN [Concomitant]
     Active Substance: ASPIRIN
     Indication: Myocarditis
     Dosage: 100 MG, 1X/DAY
     Route: 048
  31. ASPIRIN [Concomitant]
     Active Substance: ASPIRIN
     Indication: Takayasu^s arteritis
  32. ASPIRIN [Concomitant]
     Active Substance: ASPIRIN
     Indication: Renal artery stenosis
  33. OLMESARTAN [Concomitant]
     Active Substance: OLMESARTAN
     Indication: Renal artery stenosis
     Dosage: 5 MG
  34. OLMESARTAN [Concomitant]
     Active Substance: OLMESARTAN
     Indication: Takayasu^s arteritis
  35. OLMESARTAN [Concomitant]
     Active Substance: OLMESARTAN
     Indication: Myocarditis
  36. TRICHLORMETHIAZIDE [Concomitant]
     Active Substance: TRICHLORMETHIAZIDE
     Indication: Myocarditis
     Dosage: 1 MG
  37. TRICHLORMETHIAZIDE [Concomitant]
     Active Substance: TRICHLORMETHIAZIDE
     Indication: Takayasu^s arteritis
  38. TRICHLORMETHIAZIDE [Concomitant]
     Active Substance: TRICHLORMETHIAZIDE
     Indication: Renal artery stenosis
  39. SPIRONOLACTONE [Concomitant]
     Active Substance: SPIRONOLACTONE
     Indication: Renal artery stenosis
     Dosage: 50 MG
  40. SPIRONOLACTONE [Concomitant]
     Active Substance: SPIRONOLACTONE
     Indication: Takayasu^s arteritis
  41. SPIRONOLACTONE [Concomitant]
     Active Substance: SPIRONOLACTONE
     Indication: Myocarditis

REACTIONS (2)
  - Pneumonia [Unknown]
  - Herpes zoster [Unknown]
